FAERS Safety Report 25607329 (Version 1)
Quarter: 2025Q3

REPORT INFORMATION
  Report Type: Report from Study
  Country: US (occurrence: US)
  Receive Date: 20250725
  Receipt Date: 20250725
  Transmission Date: 20251020
  Serious: Yes (Other)
  Sender: ROCHE
  Company Number: US-ROCHE-10000100770

PATIENT
  Age: 74 Year
  Sex: Male

DRUGS (4)
  1. CELLCEPT [Suspect]
     Active Substance: MYCOPHENOLATE MOFETIL
     Indication: Heart transplant
     Dosage: ^TAKE 1 TABLET (500MG) BY MOUTH EVERY 12 HOURS. TAKE 1 CAPSULE (500MG) BY MOUTH EVERY 12 HOURS^
     Route: 048
  2. CELLCEPT [Suspect]
     Active Substance: MYCOPHENOLATE MOFETIL
     Dosage: ^TAKE 1 TABLET (500MG) BY MOUTH EVERY 12 HOURS. TAKE 1 CAPSULE (500MG) BY MOUTH EVERY 12 HOURS^
     Route: 048
  3. CELLCEPT [Suspect]
     Active Substance: MYCOPHENOLATE MOFETIL
     Route: 048
  4. CELLCEPT [Suspect]
     Active Substance: MYCOPHENOLATE MOFETIL
     Indication: Heart transplant
     Dosage: ^TAKE 1 TABLET (500MG) BY MOUTH EVERY 12 HOURS. TAKE 1 CAPSULE (500MG) BY MOUTH EVERY 12 HOURS^
     Route: 048

REACTIONS (4)
  - Product prescribing error [Unknown]
  - Tremor [Recovering/Resolving]
  - Off label use [Unknown]
  - Chronic inflammatory demyelinating polyradiculoneuropathy [Unknown]

NARRATIVE: CASE EVENT DATE: 20250601
